FAERS Safety Report 24250501 (Version 1)
Quarter: 2024Q3

REPORT INFORMATION
  Report Type: Report from Study
  Country: US (occurrence: None)
  Receive Date: 20240826
  Receipt Date: 20240826
  Transmission Date: 20241017
  Serious: Yes (Other)
  Sender: ASTRAZENECA
  Company Number: 2024A185627

PATIENT
  Sex: Female

DRUGS (1)
  1. TAGRISSO [Suspect]
     Active Substance: OSIMERTINIB
     Dosage: TAKE 2 TABLET DAILY BY MOUTH DAILY
     Route: 048

REACTIONS (2)
  - Metastases to central nervous system [Unknown]
  - Overdose [Unknown]
